FAERS Safety Report 13468864 (Version 3)
Quarter: 2017Q3

REPORT INFORMATION
  Report Type: Spontaneous
  Country: US (occurrence: US)
  Receive Date: 20170421
  Receipt Date: 20170707
  Transmission Date: 20171127
  Serious: Yes (Other)
  Sender: FDA-Public Use
  Company Number: US-TEVA-761726USA

PATIENT
  Age: 37 Year
  Sex: Female

DRUGS (17)
  1. TRIAZOLAM. [Concomitant]
     Active Substance: TRIAZOLAM
     Route: 065
  2. METHOCARBAM [Concomitant]
     Route: 065
  3. INDOMETHACIN. [Concomitant]
     Active Substance: INDOMETHACIN
     Route: 065
  4. HYDROCO [Concomitant]
     Route: 065
  5. ESCITALOPRAM [Concomitant]
     Active Substance: ESCITALOPRAM OXALATE
     Route: 065
  6. AMPYRA [Concomitant]
     Active Substance: DALFAMPRIDINE
     Route: 065
  7. MELOXICAM. [Concomitant]
     Active Substance: MELOXICAM
     Route: 065
  8. METRONIDAZOL [Concomitant]
     Active Substance: METRONIDAZOLE
     Route: 065
  9. ROPINIROLE. [Concomitant]
     Active Substance: ROPINIROLE
     Route: 065
  10. SERTRALINE [Concomitant]
     Active Substance: SERTRALINE HYDROCHLORIDE
     Route: 065
  11. OXYBUTYNIN [Concomitant]
     Active Substance: OXYBUTYNIN
     Route: 065
  12. TOVIAZ [Concomitant]
     Active Substance: FESOTERODINE FUMARATE
  13. COPAXONE [Suspect]
     Active Substance: GLATIRAMER ACETATE
     Indication: MULTIPLE SCLEROSIS
     Route: 058
     Dates: start: 20160921
  14. APAP [Concomitant]
     Active Substance: ACETAMINOPHEN
     Route: 065
  15. BACLOFEN. [Concomitant]
     Active Substance: BACLOFEN
     Route: 065
  16. NITROFUR [Concomitant]
     Active Substance: NITROFURANTOIN
     Route: 065
  17. VITAMIN D [Concomitant]
     Active Substance: CHOLECALCIFEROL
     Route: 065

REACTIONS (3)
  - Multiple sclerosis relapse [Recovering/Resolving]
  - Back pain [Not Recovered/Not Resolved]
  - Intervertebral disc protrusion [Not Recovered/Not Resolved]

NARRATIVE: CASE EVENT DATE: 201704
